FAERS Safety Report 6271351-3 (Version None)
Quarter: 2009Q3

REPORT INFORMATION
  Report Type: 
  Country: None (occurrence: None)
  Receive Date: 20090716
  Receipt Date: 20090716
  Transmission Date: 20100115
  Serious: No
  Sender: FDA-Public Use
  Company Number: None

PATIENT
  Sex: Female
  Weight: 79.3795 kg

DRUGS (3)
  1. GELNIQUE [Suspect]
     Indication: INCONTINENCE
     Dosage: 1 GRAM PER PACKET ONCE DAILY STOMACH LEG ABOVE KNEE
     Dates: start: 20090619
  2. GELNIQUE [Suspect]
     Indication: INCONTINENCE
     Dosage: 1 GRAM PER PACKET ONCE DAILY STOMACH LEG ABOVE KNEE
     Dates: start: 20090620
  3. GELNIQUE [Suspect]
     Indication: INCONTINENCE
     Dosage: 1 GRAM PER PACKET ONCE DAILY STOMACH LEG ABOVE KNEE
     Dates: start: 20090621

REACTIONS (8)
  - BEDRIDDEN [None]
  - CONSTIPATION [None]
  - DIZZINESS [None]
  - DRY MOUTH [None]
  - FATIGUE [None]
  - HEADACHE [None]
  - VERTIGO [None]
  - VISION BLURRED [None]
